FAERS Safety Report 17023028 (Version 1)
Quarter: 2019Q4

REPORT INFORMATION
  Report Type: Spontaneous
  Country: US (occurrence: US)
  Receive Date: 20191112
  Receipt Date: 20191112
  Transmission Date: 20200122
  Serious: Yes (Other)
  Sender: FDA-Public Use
  Company Number: US-TEVA-2019-US-1135168

PATIENT
  Sex: Female

DRUGS (2)
  1. PERMETHRIN. [Suspect]
     Active Substance: PERMETHRIN
     Route: 065
  2. DEXTRAN [Suspect]
     Active Substance: DEXTRAN
     Indication: IRON DEFICIENCY ANAEMIA
     Route: 042

REACTIONS (1)
  - Anaphylactic reaction [Unknown]
